FAERS Safety Report 8269521 (Version 2)
Quarter: 2012Q4

REPORT INFORMATION
  Report Type: 
  Country: PH (occurrence: PH)
  Receive Date: 20111130
  Receipt Date: 20120925
  Transmission Date: 20130627
  Serious: Yes (Death, Other)
  Sender: FDA-Public Use
  Company Number: PHHY2006PH009264

PATIENT
  Sex: Female

DRUGS (3)
  1. GLIVEC [Suspect]
     Indication: CHRONIC MYELOID LEUKAEMIA
     Dates: start: 20041109
  2. GLIVEC [Suspect]
     Dosage: 400 mg, QD
     Dates: start: 20041119
  3. GLIVEC [Suspect]
     Dosage: 300 mg, QD

REACTIONS (2)
  - Death [Fatal]
  - Pancreatic carcinoma [Unknown]
